FAERS Safety Report 10401452 (Version 3)
Quarter: 2014Q3

REPORT INFORMATION
  Report Type: Spontaneous
  Country: BR (occurrence: BR)
  Receive Date: 20140822
  Receipt Date: 20140924
  Transmission Date: 20150326
  Serious: Yes (Other)
  Sender: FDA-Public Use
  Company Number: BR-AMGEN-BRASP2012064714

PATIENT
  Age: 63 Year
  Sex: Female
  Weight: 82 kg

DRUGS (5)
  1. DEPURA [Concomitant]
     Active Substance: CHOLECALCIFEROL
     Dosage: 6 DROPS A DAY
  2. METHOTREXATE [Concomitant]
     Active Substance: METHOTREXATE
     Dosage: 12.5 MG (5 TABLETS OF 2.5 MG), WEEKLY
  3. ENBREL [Suspect]
     Active Substance: ETANERCEPT
     Indication: RHEUMATOID ARTHRITIS
     Dosage: 50 MG, 1X/WEEK
     Route: 058
     Dates: start: 2005
  4. ARADOIS [Concomitant]
     Active Substance: LOSARTAN POTASSIUM
     Indication: BLOOD PRESSURE
     Dosage: 25 MG, 1X/DAY
  5. NIMESULIDE [Concomitant]
     Active Substance: NIMESULIDE
     Dosage: UNK

REACTIONS (2)
  - Injection site pain [Not Recovered/Not Resolved]
  - Extranodal marginal zone B-cell lymphoma (MALT type) [Unknown]

NARRATIVE: CASE EVENT DATE: 20140508
